FAERS Safety Report 16503431 (Version 1)
Quarter: 2019Q3

REPORT INFORMATION
  Report Type: Spontaneous
  Country: US (occurrence: US)
  Receive Date: 20190701
  Receipt Date: 20190701
  Transmission Date: 20191004
  Serious: No
  Sender: FDA-Public Use
  Company Number: US-BAYER-2019-124217

PATIENT
  Age: 19 Year
  Sex: Female

DRUGS (1)
  1. GADAVIST [Suspect]
     Active Substance: GADOBUTROL
     Indication: SCAN WITH CONTRAST
     Dosage: UNK
     Dates: start: 20190313

REACTIONS (3)
  - Disturbance in attention [Not Recovered/Not Resolved]
  - Burning sensation [Not Recovered/Not Resolved]
  - Bone pain [Not Recovered/Not Resolved]

NARRATIVE: CASE EVENT DATE: 20190313
